FAERS Safety Report 21400353 (Version 2)
Quarter: 2022Q4

REPORT INFORMATION
  Report Type: Report from Study
  Country: US (occurrence: US)
  Receive Date: 20221002
  Receipt Date: 20221215
  Transmission Date: 20230113
  Serious: No
  Sender: FDA-Public Use
  Company Number: US-ABBVIE-22K-163-4519124-00

PATIENT
  Sex: Female

DRUGS (7)
  1. HUMIRA [Suspect]
     Active Substance: ADALIMUMAB
     Indication: Hidradenitis
     Route: 058
  2. HUMIRA [Suspect]
     Active Substance: ADALIMUMAB
     Route: 058
  3. HUMIRA [Suspect]
     Active Substance: ADALIMUMAB
     Route: 058
  4. Pfizer BioNTech COVID-19 vaccine (Tozinameran) [Concomitant]
     Indication: COVID-19 immunisation
     Dosage: FIRST DOSE, 1 IN ONCE
     Route: 030
     Dates: start: 2021, end: 2021
  5. Pfizer BioNTech COVID-19 vaccine (Tozinameran) [Concomitant]
     Indication: COVID-19 immunisation
     Dosage: SECOND DOSE, 2ND DOSE
     Route: 030
     Dates: start: 2021, end: 2021
  6. Pfizer BioNTech COVID-19 vaccine (Tozinameran) [Concomitant]
     Indication: COVID-19 immunisation
     Dosage: BOOSTER DOSE, 1 IN ONCE
     Route: 030
     Dates: start: 2021, end: 2021
  7. Pfizer BioNTech COVID-19 vaccine (Tozinameran) [Concomitant]
     Indication: COVID-19 immunisation
     Dosage: SECOND BOOSTER DOSE,  1 IN ONCE
     Route: 030
     Dates: start: 2022, end: 2022

REACTIONS (2)
  - Hidradenitis [Not Recovered/Not Resolved]
  - Drug ineffective [Not Recovered/Not Resolved]

NARRATIVE: CASE EVENT DATE: 20220101
